FAERS Safety Report 7091032-6 (Version None)
Quarter: 2010Q4

REPORT INFORMATION
  Report Type: 
  Country: None (occurrence: None)
  Receive Date: 20101105
  Receipt Date: 20101105
  Transmission Date: 20110411
  Serious: Yes (Hospitalization)
  Sender: FDA-Public Use
  Company Number: None

PATIENT
  Sex: Female
  Weight: 101 kg

DRUGS (4)
  1. CARBOPLATIN [Suspect]
     Dosage: 420 MG
     Dates: end: 20101013
  2. TAXOTERE [Suspect]
     Dosage: 129 MG
     Dates: end: 20101013
  3. HERCEPTIN [Suspect]
     Dosage: 214 MG
     Dates: end: 20101020
  4. LOTREL [Concomitant]

REACTIONS (2)
  - HYPOTENSION [None]
  - TACHYCARDIA [None]
